FAERS Safety Report 9887291 (Version 1)
Quarter: 2014Q1

REPORT INFORMATION
  Report Type: Spontaneous
  Country: US (occurrence: US)
  Receive Date: 20140211
  Receipt Date: 20140211
  Transmission Date: 20141002
  Serious: No
  Sender: FDA-Public Use
  Company Number: US-BIOGENIDEC-2014BI010588

PATIENT
  Age: 58 Year
  Sex: Female

DRUGS (7)
  1. TECFIDERA [Suspect]
     Indication: MULTIPLE SCLEROSIS
     Route: 048
  2. AMPYRA [Concomitant]
  3. BACLOFEN [Concomitant]
  4. ESTROVEN [Concomitant]
  5. IBUPROFEN [Concomitant]
  6. SERTRALINE HCL [Concomitant]
  7. TYLENOL [Concomitant]

REACTIONS (2)
  - Bronchitis [Unknown]
  - Vomiting [Unknown]
